FAERS Safety Report 6309808-9 (Version None)
Quarter: 2009Q3

REPORT INFORMATION
  Report Type: 
  Country: None (occurrence: None)
  Receive Date: 20090811
  Receipt Date: 20090626
  Transmission Date: 20100115
  Serious: No
  Sender: FDA-Public Use
  Company Number: 1000007075

PATIENT
  Age: 54 Year
  Sex: Male
  Weight: 65.318 kg

DRUGS (14)
  1. SAVELLA [Suspect]
     Indication: NEUROPATHY PERIPHERAL
     Dosage: SEE IMAGE
     Route: 048
     Dates: start: 20090529, end: 20090529
  2. SAVELLA [Suspect]
     Indication: NEUROPATHY PERIPHERAL
     Dosage: SEE IMAGE
     Route: 048
     Dates: start: 20090530, end: 20090531
  3. SAVELLA [Suspect]
     Indication: NEUROPATHY PERIPHERAL
     Dosage: SEE IMAGE
     Route: 048
     Dates: start: 20090601, end: 20090604
  4. SAVELLA [Suspect]
     Indication: NEUROPATHY PERIPHERAL
     Dosage: SEE IMAGE
     Route: 048
     Dates: start: 20090605
  5. OXYCODONE [Concomitant]
  6. MORPHINE [Concomitant]
  7. LANTUS [Concomitant]
  8. INSULIN (INJECTION) [Concomitant]
  9. GABAPENTIN [Concomitant]
  10. ISOSORBIDE DINITRATE [Concomitant]
  11. ASPIRIN [Concomitant]
  12. SYNTHROID [Concomitant]
  13. CADUET [Concomitant]
  14. LISINOPRIL [Concomitant]

REACTIONS (2)
  - URINARY INCONTINENCE [None]
  - WEIGHT DECREASED [None]
